FAERS Safety Report 5729811-7 (Version None)
Quarter: 2008Q2

REPORT INFORMATION
  Report Type: 
  Country: None (occurrence: None)
  Receive Date: 20080501
  Receipt Date: 20080422
  Transmission Date: 20081010
  Serious: Yes (Hospitalization)
  Sender: FDA-Public Use
  Company Number: 100#08#2008-02388

PATIENT
  Age: 68 Year
  Sex: Female

DRUGS (2)
  1. CARVEDILOL [Suspect]
     Indication: DRUG USE FOR UNKNOWN INDICATION
  2. DOBUTAMINE (DOBUTAMINE) [Suspect]
     Indication: MYOCARDIAL INFARCTION

REACTIONS (7)
  - ANGINA UNSTABLE [None]
  - CORONARY ARTERY STENOSIS [None]
  - DRUG INTERACTION [None]
  - HYPOTENSION [None]
  - HYPOVENTILATION [None]
  - MENTAL STATUS CHANGES [None]
  - MYOCARDIAL INFARCTION [None]
